FAERS Safety Report 8619735-X (Version None)
Quarter: 2012Q3

REPORT INFORMATION
  Report Type: 
  Country: None (occurrence: None)
  Receive Date: 20120824
  Receipt Date: 20120730
  Transmission Date: 20120928
  Serious: Yes (Hospitalization, Other)
  Sender: FDA-Public Use
  Company Number: JP-009507513-2012SP025340

PATIENT

DRUGS (16)
  1. TELAVIC [Suspect]
     Indication: HEPATITIS C
     Dosage: 2250 MG, ONCE
     Route: 048
     Dates: start: 20120117, end: 20120229
  2. GLUFAST [Concomitant]
     Indication: DIABETES MELLITUS
     Route: 048
  3. TELAVIC [Suspect]
     Dosage: 1500 MG, ONCE
     Route: 048
     Dates: start: 20120301, end: 20120320
  4. GLUFAST [Concomitant]
     Indication: PRODUCT USED FOR UNKNOWN INDICATION
     Dosage: FORMULATION: POR
     Route: 048
  5. TAMIFLU [Concomitant]
     Indication: PROPHYLAXIS
     Route: 048
     Dates: start: 20120204, end: 20120209
  6. REBETOL [Suspect]
     Dosage: 200 MG, QD
     Route: 048
     Dates: start: 20120131, end: 20120320
  7. TELAVIC [Suspect]
     Dosage: UNK
  8. ZANTAC [Concomitant]
     Indication: PRODUCT USED FOR UNKNOWN INDICATION
     Dosage: FORMULATION: POR
     Route: 048
  9. PRIMPERAN TAB [Concomitant]
     Indication: HEPATITIS C
     Dosage: FORMULATION: POR
     Route: 048
     Dates: start: 20120126
  10. TAMIFLU [Concomitant]
     Indication: PRODUCT USED FOR UNKNOWN INDICATION
     Dosage: FORMULATION: POR
     Route: 048
  11. PEG-INTRON [Suspect]
     Indication: HEPATITIS C
     Dosage: 1.5MCG/KG/WEEK
     Route: 058
     Dates: start: 20120117, end: 20120327
  12. REBETOL [Suspect]
     Indication: HEPATITIS C
     Dosage: 600 MG, ONCE
     Route: 048
     Dates: start: 20120117, end: 20120130
  13. ANTIVIRAL (UNSPECIFIED) [Suspect]
     Indication: HEPATITIS C
     Dosage: 2250 MG, QD
     Route: 048
     Dates: start: 20120117, end: 20120229
  14. ACETAMINOPHEN [Concomitant]
     Indication: HEPATITIS C
     Dosage: FORMULATION: POR
     Route: 048
     Dates: start: 20120118
  15. ANTIVIRAL (UNSPECIFIED) [Suspect]
     Dosage: 1500 MG, QD
     Route: 048
     Dates: start: 20120301, end: 20120320
  16. ZANTAC [Concomitant]
     Indication: GASTRITIS
     Route: 048

REACTIONS (3)
  - PANCREATITIS ACUTE [None]
  - ANAEMIA [None]
  - AMYLASE INCREASED [None]
